FAERS Safety Report 23858054 (Version 1)
Quarter: 2024Q2

REPORT INFORMATION
  Report Type: Spontaneous
  Country: US (occurrence: US)
  Receive Date: 20240515
  Receipt Date: 20240515
  Transmission Date: 20240716
  Serious: No
  Sender: FDA-Public Use
  Company Number: US-MYLANLABS-2024M1017000

PATIENT
  Sex: Male
  Weight: 108.86 kg

DRUGS (3)
  1. ATORVASTATIN CALCIUM [Suspect]
     Active Substance: ATORVASTATIN CALCIUM
     Indication: Blood cholesterol increased
     Dosage: 5 MILLIGRAM, QD
     Route: 065
  2. TELMISARTAN [Concomitant]
     Active Substance: TELMISARTAN
     Indication: Hypertension
     Dosage: 80 MILLIGRAM, QD
     Route: 065
  3. AMLODIPINE [Concomitant]
     Active Substance: AMLODIPINE BESYLATE
     Indication: Hypertension
     Dosage: 10 MILLIGRAM, QD
     Route: 065

REACTIONS (9)
  - Sinusitis [Recovered/Resolved]
  - Asthenia [Unknown]
  - Malaise [Unknown]
  - Pruritus [Unknown]
  - Pain [Unknown]
  - Injection site pain [Unknown]
  - Injection site swelling [Unknown]
  - Rhinitis [Unknown]
  - Fatigue [Unknown]
